FAERS Safety Report 7443372-6 (Version None)
Quarter: 2011Q2

REPORT INFORMATION
  Report Type: 
  Country: None (occurrence: None)
  Receive Date: 20110428
  Receipt Date: 20100329
  Transmission Date: 20111010
  Serious: No
  Sender: FDA-Public Use
  Company Number: US-BAYER-201019065NA

PATIENT
  Sex: Female

DRUGS (2)
  1. PROVERA [Suspect]
     Indication: AMENORRHOEA
  2. YAZ [Suspect]
     Indication: AMENORRHOEA
     Dosage: UNK
     Route: 048

REACTIONS (2)
  - VAGINAL HAEMORRHAGE [None]
  - MENORRHAGIA [None]
